FAERS Safety Report 5612188-5 (Version None)
Quarter: 2008Q1

REPORT INFORMATION
  Report Type: 
  Country: None (occurrence: None)
  Receive Date: 20080131
  Receipt Date: 20080131
  Transmission Date: 20080703
  Serious: Yes (Life-Threatening)
  Sender: FDA-Public Use
  Company Number: None

PATIENT
  Age: 40 Year
  Sex: Male
  Weight: 81.6475 kg

DRUGS (2)
  1. TRAMADOL HCL [Suspect]
     Indication: BACK PAIN
     Dosage: 50 MG  Q 6 H  PO
     Route: 048
     Dates: start: 20080117, end: 20080126
  2. CARISOPRODOL [Suspect]
     Indication: BACK PAIN
     Dosage: 350 MG  TID  PO
     Route: 048
     Dates: start: 20080117, end: 20080126

REACTIONS (2)
  - RASH [None]
  - SUICIDAL IDEATION [None]
